FAERS Safety Report 7870387-6 (Version None)
Quarter: 2011Q4

REPORT INFORMATION
  Report Type: 
  Country: None (occurrence: None)
  Receive Date: 20111029
  Receipt Date: 20110221
  Transmission Date: 20120403
  Serious: No
  Sender: FDA-Public Use
  Company Number: US-AMGEN-USASP2010006375

PATIENT
  Age: 73 Year
  Sex: Male

DRUGS (1)
  1. ENBREL [Suspect]
     Indication: PSORIASIS
     Dates: start: 20100813

REACTIONS (4)
  - FATIGUE [None]
  - ABDOMINAL PAIN UPPER [None]
  - HEADACHE [None]
  - FREQUENT BOWEL MOVEMENTS [None]
